FAERS Safety Report 19667990 (Version 1)
Quarter: 2021Q3

REPORT INFORMATION
  Report Type: Spontaneous
  Country: US (occurrence: US)
  Receive Date: 20210806
  Receipt Date: 20210806
  Transmission Date: 20211014
  Serious: Yes (Hospitalization)
  Sender: FDA-Public Use
  Company Number: US-ACELLA PHARMACEUTICALS, LLC-2114719

PATIENT
  Age: 59 Year
  Sex: Female

DRUGS (1)
  1. NP THYROID [Suspect]
     Active Substance: LEVOTHYROXINE\LIOTHYRONINE
     Indication: HYPOTHYROIDISM
     Route: 048
     Dates: start: 2017, end: 201803

REACTIONS (8)
  - Myelitis transverse [Not Recovered/Not Resolved]
  - Palpitations [Recovered/Resolved]
  - Fatigue [Recovered/Resolved]
  - Feeling cold [Recovered/Resolved]
  - Dry skin [Recovered/Resolved]
  - Alopecia [Recovered/Resolved with Sequelae]
  - Chest discomfort [Recovered/Resolved]
  - Feeling abnormal [Recovered/Resolved]

NARRATIVE: CASE EVENT DATE: 201803
